FAERS Safety Report 24336570 (Version 1)
Quarter: 2024Q3

REPORT INFORMATION
  Report Type: Spontaneous
  Country: JP (occurrence: JP)
  Receive Date: 20240919
  Receipt Date: 20240919
  Transmission Date: 20241016
  Serious: No
  Sender: ROCHE
  Company Number: JP-CHUGAI-2023046611

PATIENT
  Age: 74 Year
  Sex: Female

DRUGS (15)
  1. TAMIFLU [Suspect]
     Active Substance: OSELTAMIVIR PHOSPHATE
     Indication: Antiviral prophylaxis
     Route: 065
     Dates: start: 20231201, end: 20231205
  2. TAMIFLU [Suspect]
     Active Substance: OSELTAMIVIR PHOSPHATE
     Indication: Influenza
     Route: 065
     Dates: start: 20231207, end: 20231207
  3. TAMIFLU [Suspect]
     Active Substance: OSELTAMIVIR PHOSPHATE
     Route: 065
     Dates: start: 20231208, end: 20231212
  4. SODIUM PICOSULFATE [Concomitant]
     Active Substance: SODIUM PICOSULFATE
     Dosage: 1 DOSAGE FORM, QD
     Dates: start: 20231010
  5. PHENOBARBITAL [Concomitant]
     Active Substance: PHENOBARBITAL
     Dosage: 1.5 GRAM, BID
     Dates: start: 20231010
  6. PHENYTOIN SODIUM [Concomitant]
     Active Substance: PHENYTOIN SODIUM
     Dosage: 2 GRAM, BID
     Dates: start: 20231010
  7. CERCINE [Concomitant]
     Active Substance: DIAZEPAM
     Dosage: 2 DOSAGE FORM, BID
     Dates: start: 20231010
  8. LEVOTHYROXINE SODIUM [Concomitant]
     Active Substance: LEVOTHYROXINE SODIUM
     Dosage: 2 DOSAGE FORM, QD
     Dates: start: 20231010
  9. ONEALFA [Concomitant]
     Active Substance: ALFACALCIDOL
     Dosage: 1 MICROGRAM, QD
     Dates: start: 20231010
  10. SODIUM FERROUS CITRATE [Concomitant]
     Active Substance: SODIUM FERROUS CITRATE
     Dosage: 1 DOSAGE FORM, QD
     Dates: start: 20231010
  11. URAPIDIL [Concomitant]
     Active Substance: URAPIDIL
     Dosage: 1 DOSAGE FORM, QD
     Dates: start: 20231010
  12. GASCON (JAPAN) [Concomitant]
     Dosage: 3 DOSAGE FORM, TID
     Dates: start: 20231010
  13. HERBALS [Concomitant]
     Active Substance: HERBALS
     Dosage: 7.5 GRAM, TID
     Dates: start: 20231010
  14. BISACODYL [Concomitant]
     Active Substance: BISACODYL
     Dosage: 1 DOSAGE FORM, QOD
     Dates: start: 20231031
  15. RINDERON VG [Concomitant]
     Active Substance: BETAMETHASONE VALERATE\GENTAMICIN SULFATE
     Dosage: UNK, QD, RIGHT AXILLA
     Dates: start: 20231114

REACTIONS (1)
  - Influenza [Unknown]

NARRATIVE: CASE EVENT DATE: 20231208
